FAERS Safety Report 4973159-5 (Version None)
Quarter: 2006Q2

REPORT INFORMATION
  Report Type: 
  Country: None (occurrence: None)
  Receive Date: 20060414
  Receipt Date: 20051215
  Transmission Date: 20061013
  Serious: Yes (Hospitalization)
  Sender: FDA-Public Use
  Company Number: US-MERCK-0512USA02552

PATIENT
  Age: 74 Year
  Sex: Female
  Weight: 66 kg

DRUGS (17)
  1. ZANAFLEX [Concomitant]
     Route: 065
     Dates: start: 20031223, end: 20040402
  2. TIZANIDINE HYDROCHLORIDE [Concomitant]
     Route: 065
     Dates: start: 20030122, end: 20030124
  3. NEURONTIN [Concomitant]
     Route: 065
     Dates: start: 20030122
  4. DIOVAN [Concomitant]
     Route: 065
     Dates: start: 20030911, end: 20050411
  5. NORVASC [Concomitant]
     Route: 065
     Dates: start: 20030122, end: 20040330
  6. BACLOFEN [Concomitant]
     Route: 065
     Dates: start: 20040415, end: 20050423
  7. CARISOPRODOL [Concomitant]
     Route: 065
     Dates: start: 20040719, end: 20050719
  8. VIOXX [Suspect]
     Indication: ARTHRITIS
     Route: 048
     Dates: start: 19990101, end: 20041001
  9. BEXTRA [Concomitant]
     Route: 065
     Dates: start: 20041111, end: 20050211
  10. DURAGESIC-100 [Concomitant]
     Route: 065
     Dates: start: 20040826, end: 20040904
  11. HYDROCODONE BITARTRATE [Concomitant]
     Route: 065
     Dates: start: 20010516, end: 20010917
  12. LIDODERM [Concomitant]
     Route: 065
     Dates: start: 20030122, end: 20030222
  13. METHYLPREDNISOLONE [Concomitant]
     Route: 065
     Dates: start: 20030605, end: 20030601
  14. NAPROXEN SODIUM [Concomitant]
     Route: 065
     Dates: start: 20000409, end: 20000509
  15. PLETAL [Concomitant]
     Route: 065
     Dates: start: 20030911, end: 20050211
  16. SOMA [Concomitant]
     Route: 065
     Dates: start: 20041007, end: 20050312
  17. TYLENOL (CAPLET) [Concomitant]
     Route: 065

REACTIONS (21)
  - ANXIETY [None]
  - ASTHMA [None]
  - BACTERIAL INFECTION [None]
  - BLOOD CHOLESTEROL INCREASED [None]
  - CAROTID ARTERY STENOSIS [None]
  - CEREBROVASCULAR ACCIDENT [None]
  - CORONARY ARTERY STENOSIS [None]
  - COUGH [None]
  - DEPRESSION [None]
  - DIABETES MELLITUS [None]
  - DIARRHOEA [None]
  - DYSPEPSIA [None]
  - EYE DISORDER [None]
  - FLUID RETENTION [None]
  - HIP FRACTURE [None]
  - INSOMNIA [None]
  - IRRITABLE BOWEL SYNDROME [None]
  - NAUSEA [None]
  - OEDEMA PERIPHERAL [None]
  - PAIN IN EXTREMITY [None]
  - VASCULAR STENOSIS [None]
